FAERS Safety Report 9835975 (Version 2)
Quarter: 2014Q1

REPORT INFORMATION
  Report Type: Report from Study
  Country: AU (occurrence: AU)
  Receive Date: 20140122
  Receipt Date: 20140122
  Transmission Date: 20141002
  Serious: Yes (Other)
  Sender: FDA-Public Use
  Company Number: PHHY2013AU151562

PATIENT
  Age: 72 Year
  Sex: Female

DRUGS (1)
  1. ACLASTA [Suspect]
     Dosage: 5 MG, UNK
     Route: 042
     Dates: start: 20131218

REACTIONS (7)
  - Liver function test abnormal [Unknown]
  - Inflammatory marker increased [Unknown]
  - Tremor [Recovered/Resolved]
  - Headache [Recovered/Resolved]
  - Bone pain [Recovering/Resolving]
  - Blood creatine phosphokinase decreased [Recovered/Resolved]
  - Blood glucose increased [Unknown]
